FAERS Safety Report 11018629 (Version 2)
Quarter: 2015Q2

REPORT INFORMATION
  Report Type: Spontaneous
  Country: US (occurrence: US)
  Receive Date: 20150412
  Receipt Date: 20150524
  Transmission Date: 20150821
  Serious: Yes (Other)
  Sender: FDA-Public Use
  Company Number: US-JNJFOC-20140716234

PATIENT

DRUGS (3)
  1. ABEXINOSTAT [Suspect]
     Active Substance: ABEXINOSTAT
     Indication: NEOPLASM
     Route: 048
  2. DOXORUBICIN HYDROCHLORIDE. [Suspect]
     Active Substance: DOXORUBICIN HYDROCHLORIDE
     Indication: NEOPLASM
     Dosage: ON DAY 3 OF EACH WEEK OF ABEXINOSTAT SCHEDULE
     Route: 042
  3. ABEXINOSTAT [Suspect]
     Active Substance: ABEXINOSTAT
     Indication: NEOPLASM
     Dosage: 30-75 MG/M2
     Route: 048

REACTIONS (3)
  - Fatigue [Unknown]
  - Thrombocytopenia [Unknown]
  - Neutropenia [Unknown]
